FAERS Safety Report 10393229 (Version 1)
Quarter: 2014Q3

REPORT INFORMATION
  Report Type: Spontaneous
  Country: AU (occurrence: None)
  Receive Date: 20140815
  Receipt Date: 20140815
  Transmission Date: 20150326
  Serious: Yes (Hospitalization, Other)
  Sender: FDA-Public Use
  Company Number: AUR-APL-2014-08365

PATIENT
  Age: 83 Year
  Sex: Female

DRUGS (12)
  1. EZETIMIBE. [Concomitant]
     Active Substance: EZETIMIBE
  2. PROPYLTHIOURACIL. [Concomitant]
     Active Substance: PROPYLTHIOURACIL
  3. CLARITHROMYCIN (CLARITHROMYCIN) [Suspect]
     Active Substance: CLARITHROMYCIN
     Indication: ASTHMA
  4. RAMIPRIL. [Concomitant]
     Active Substance: RAMIPRIL
  5. NITROLINGUAL-SPRAY (GLYCERYL TRINITRATE) [Concomitant]
  6. CLARITHROMYCIN (CLARITHROMYCIN) [Suspect]
     Active Substance: CLARITHROMYCIN
     Indication: LOWER RESPIRATORY TRACT INFECTION
  7. ASPIRIN (ACETYLSALICYLIC ACID) [Concomitant]
     Active Substance: ASPIRIN
  8. VENTOLIN /00139501/ (SALBUTAMOL) [Concomitant]
  9. TIOTROPIUM [Concomitant]
     Active Substance: TIOTROPIUM
  10. SERETIDE [Concomitant]
     Active Substance: FLUTICASONE FUROATE\SALMETEROL XINAFOATE
  11. SIMVASTATIN (SIMVASTATIN) UNKNOWN, UNKNOWN [Suspect]
     Active Substance: SIMVASTATIN
     Indication: PRODUCT USED FOR UNKNOWN INDICATION
  12. METOPROLOL [Concomitant]
     Active Substance: METOPROLOL

REACTIONS (7)
  - Tenderness [None]
  - Rhabdomyolysis [None]
  - Malaise [None]
  - Troponin T increased [None]
  - Drug interaction [None]
  - Wheezing [None]
  - Oedema peripheral [None]
